FAERS Safety Report 5338816-X (Version None)
Quarter: 2007Q2

REPORT INFORMATION
  Report Type: 
  Country: None (occurrence: None)
  Receive Date: 20070530
  Receipt Date: 20070520
  Transmission Date: 20071010
  Serious: Yes (Other)
  Sender: FDA-Public Use
  Company Number: NO-JNJFOC-20070506036

PATIENT
  Sex: Male

DRUGS (4)
  1. FUNGORAL SHAMPOO [Suspect]
     Indication: DRUG USE FOR UNKNOWN INDICATION
     Route: 061
  2. SYMBICORT [Concomitant]
     Route: 065
  3. OXIS [Concomitant]
     Route: 065
  4. SINGULAIR [Concomitant]
     Indication: DRUG USE FOR UNKNOWN INDICATION
     Route: 065

REACTIONS (2)
  - ASTHMA [None]
  - MEDICATION RESIDUE [None]
